FAERS Safety Report 25249694 (Version 1)
Quarter: 2025Q2

REPORT INFORMATION
  Report Type: Spontaneous
  Country: GB (occurrence: GB)
  Receive Date: 20250429
  Receipt Date: 20250429
  Transmission Date: 20250717
  Serious: Yes (Other)
  Sender: B BRAUN
  Company Number: GB-B.Braun Medical Inc.-2175615

PATIENT
  Sex: Female

DRUGS (2)
  1. ACETAMINOPHEN [Suspect]
     Active Substance: ACETAMINOPHEN
  2. AMLODIPINE [Concomitant]
     Active Substance: AMLODIPINE BESYLATE

REACTIONS (3)
  - Brain fog [Unknown]
  - Fluid retention [Unknown]
  - Fatigue [Unknown]
